FAERS Safety Report 23409815 (Version 1)
Quarter: 2024Q1

REPORT INFORMATION
  Report Type: Spontaneous
  Country: US (occurrence: US)
  Receive Date: 20240117
  Receipt Date: 20240117
  Transmission Date: 20240409
  Serious: No
  Sender: FDA-Public Use
  Company Number: US-PFIZER INC-202400015504

PATIENT
  Age: 79 Year
  Sex: Male

DRUGS (1)
  1. IBRANCE [Suspect]
     Active Substance: PALBOCICLIB
     Dosage: 100 MG TABLETS - 1 TABLET DAILY FOR 21 DAYS, THEN 7 DAYS OFF EVERY 28 DAY CYCLE
     Dates: start: 20240102

REACTIONS (2)
  - Faecal volume decreased [Not Recovered/Not Resolved]
  - Appetite disorder [Not Recovered/Not Resolved]
